FAERS Safety Report 7060474-7 (Version None)
Quarter: 2010Q4

REPORT INFORMATION
  Report Type: 
  Country: None (occurrence: None)
  Receive Date: 20101025
  Receipt Date: 20101015
  Transmission Date: 20110411
  Serious: Yes (Life-Threatening, Hospitalization, Other)
  Sender: FDA-Public Use
  Company Number: FR-GENZYME-FLUD-1000292

PATIENT
  Sex: Female

DRUGS (3)
  1. FLUDARA [Suspect]
     Indication: FOLLICLE CENTRE LYMPHOMA, FOLLICULAR GRADE I, II, III
     Dosage: UNK
     Route: 042
     Dates: start: 20090601, end: 20091001
  2. MABTHERA [Suspect]
     Indication: FOLLICLE CENTRE LYMPHOMA, FOLLICULAR GRADE I, II, III
     Dosage: 0.016 UNK, UNK
     Route: 042
     Dates: start: 20090601, end: 20091223
  3. RYTHMOL [Suspect]
     Indication: ARRHYTHMIA
     Dosage: UNK
     Route: 048

REACTIONS (4)
  - CARDIOGENIC SHOCK [None]
  - DYSPNOEA [None]
  - HYPERTENSION [None]
  - RESPIRATORY DISORDER [None]
